FAERS Safety Report 23971391 (Version 1)
Quarter: 2024Q2

REPORT INFORMATION
  Report Type: Spontaneous
  Country: US (occurrence: None)
  Receive Date: 20240612
  Receipt Date: 20240612
  Transmission Date: 20240716
  Serious: Yes (Other)
  Sender: FDA-Public Use
  Company Number: None

PATIENT
  Age: 64 Year
  Sex: Male
  Weight: 101 kg

DRUGS (4)
  1. TAMSULOSIN [Suspect]
     Active Substance: TAMSULOSIN
     Indication: Benign prostatic hyperplasia
     Dosage: FREQUENCY : DAILY;?
     Route: 048
     Dates: start: 20240407, end: 20240418
  2. LAMOTRIGINE [Concomitant]
     Active Substance: LAMOTRIGINE
  3. OLANZAPINE [Concomitant]
     Active Substance: OLANZAPINE
  4. VALPROIC ACID [Concomitant]
     Active Substance: VALPROIC ACID

REACTIONS (4)
  - Hypoxia [None]
  - Hypotension [None]
  - Pallor [None]
  - Heart rate increased [None]

NARRATIVE: CASE EVENT DATE: 20240417
